FAERS Safety Report 8880551 (Version 2)
Quarter: 2012Q4

REPORT INFORMATION
  Report Type: Report from Study
  Country: JP (occurrence: JP)
  Receive Date: 20121031
  Receipt Date: 20121127
  Transmission Date: 20130627
  Serious: Yes (Hospitalization)
  Sender: FDA-Public Use
  Company Number: JP-GILEAD-2012-0063961

PATIENT
  Age: 60 Year
  Sex: Female

DRUGS (27)
  1. AMBRISENTAN [Suspect]
     Indication: PULMONARY ARTERIAL HYPERTENSION
     Dosage: 5MG Per day
     Route: 048
     Dates: start: 20110121
  2. FUROSEMIDE [Suspect]
     Indication: PRODUCT USED FOR UNKNOWN INDICATION
     Route: 048
  3. SPIRONOLACTONE [Suspect]
     Indication: PRODUCT USED FOR UNKNOWN INDICATION
     Route: 048
  4. DIART [Suspect]
     Indication: PRODUCT USED FOR UNKNOWN INDICATION
     Route: 048
  5. FLOLAN [Concomitant]
     Indication: PULMONARY ARTERIAL HYPERTENSION
     Dosage: 5MG Per day
     Route: 042
     Dates: start: 20110121
  6. FLOLAN [Concomitant]
     Dosage: UNK
     Route: 042
     Dates: end: 20110322
  7. FLOLAN [Concomitant]
     Dosage: UNK
     Route: 042
     Dates: start: 20110323, end: 20110324
  8. FLOLAN [Concomitant]
     Dosage: UNK
     Route: 042
     Dates: start: 20110325, end: 20110329
  9. FLOLAN [Concomitant]
     Dosage: UNK
     Route: 042
     Dates: start: 20110330, end: 20110615
  10. FLOLAN [Concomitant]
     Route: 042
     Dates: start: 20110616, end: 20110626
  11. FLOLAN [Concomitant]
     Route: 042
     Dates: start: 20110627, end: 20110703
  12. FLOLAN [Concomitant]
     Route: 042
     Dates: start: 20110704
  13. ADCIRCA [Concomitant]
     Indication: PULMONARY ARTERIAL HYPERTENSION
     Route: 048
     Dates: start: 20110128
  14. SLOW-K [Concomitant]
     Route: 048
  15. SLOW-K [Concomitant]
     Route: 048
  16. AZULENE SODIUM SULFONATE W/LEVOGLUTAMIDE [Concomitant]
     Route: 048
  17. LAC-B [Concomitant]
     Route: 048
  18. LAC-B [Concomitant]
     Route: 048
  19. ETIZOLAM [Concomitant]
     Route: 048
  20. ETIZOLAM [Concomitant]
     Route: 048
  21. FERROUS SODIUM CITRATE [Concomitant]
     Route: 048
  22. MYSLEE [Concomitant]
     Route: 048
  23. MYSLEE [Concomitant]
     Route: 048
  24. SODIUM RABEPRAZOLE [Concomitant]
     Route: 048
  25. SODIUM RABEPRAZOLE [Concomitant]
     Route: 048
  26. AZULENE SODIUM SULFONATE W/LEVOGLUTAMIDE [Concomitant]
     Route: 048
  27. FERROUS SODIUM CITRATE [Concomitant]
     Route: 048

REACTIONS (1)
  - Cardiac failure [Recovered/Resolved]
